FAERS Safety Report 9272426 (Version 1)
Quarter: 2013Q2

REPORT INFORMATION
  Report Type: Spontaneous
  Country: US (occurrence: US)
  Receive Date: 20130506
  Receipt Date: 20130506
  Transmission Date: 20140414
  Serious: Yes (Hospitalization)
  Sender: FDA-Public Use
  Company Number: US-BAYER-2013-053282

PATIENT
  Age: 18 Year
  Sex: Female

DRUGS (1)
  1. YASMIN [Suspect]
     Dosage: UNK
     Dates: start: 2007

REACTIONS (4)
  - Biliary dyskinesia [None]
  - Post procedural diarrhoea [None]
  - Pain [None]
  - Anxiety [None]
